FAERS Safety Report 8899301 (Version 1)
Quarter: 2012Q4

REPORT INFORMATION
  Report Type: 
  Country: US (occurrence: US)
  Receive Date: 20121108
  Receipt Date: 20121108
  Transmission Date: 20130627
  Serious: No
  Sender: FDA-Public Use
  Company Number: US-AMGEN-USASP2012033001

PATIENT
  Sex: Female
  Weight: 61.22 kg

DRUGS (9)
  1. ENBREL [Suspect]
     Indication: PRODUCT USED FOR UNKNOWN INDICATION
     Dosage: 50 mg, qwk
     Route: 058
  2. PLAQUENIL                          /00072603/ [Concomitant]
     Dosage: 200 mg, UNK
  3. LIPITOR [Concomitant]
     Dosage: 20 mg, UNK
  4. TRICOR                             /00090101/ [Concomitant]
     Dosage: 48 mg, UNK
  5. ARAVA [Concomitant]
     Dosage: 10 mg, UNK
  6. PRILOSEC                           /00661201/ [Concomitant]
     Dosage: 20 mg, UNK
  7. TOPROL [Concomitant]
     Dosage: 100 mg, UNK
  8. LEXAPRO [Concomitant]
     Dosage: 10 mg, UNK
  9. ASPIRIN BUFFERED [Concomitant]
     Dosage: 325 mg, UNK

REACTIONS (1)
  - Drug ineffective [Unknown]
